FAERS Safety Report 9505377 (Version 1)
Quarter: 2013Q1

REPORT INFORMATION
  Report Type: Spontaneous
  Country: US (occurrence: None)
  Receive Date: 20130220
  Receipt Date: 20130220
  Transmission Date: 20140127
  Serious: No
  Sender: FDA-Public Use
  Company Number: 1000040483

PATIENT
  Sex: 0

DRUGS (4)
  1. VIIBRYD ( VILAZODONE HYDROCHLORIDE) ( 10 MILLIGRAM, TABLETS) [Suspect]
     Indication: DEPRESSION
     Dosage: 10MG (10 MG, 1 IN 1 D), ORAL
     Route: 048
     Dates: start: 20121029, end: 20121104
  2. TRAZODONE (TRAZODONE) (TRAZODONE) [Concomitant]
  3. BIRTH CONTROL (NOS) (BIRTH CONTROL [Concomitant]
  4. LEVOTHYROXINE (LEVOTHYROXINE SODIUM) (LEVOTHYROXINE SODIUM) [Concomitant]

REACTIONS (3)
  - Abdominal distension [None]
  - Diarrhoea [None]
  - Abdominal pain [None]
